FAERS Safety Report 12115575 (Version 2)
Quarter: 2016Q2

REPORT INFORMATION
  Report Type: Spontaneous
  Country: JP (occurrence: JP)
  Receive Date: 20160225
  Receipt Date: 20160414
  Transmission Date: 20160815
  Serious: Yes (Other)
  Sender: FDA-Public Use
  Company Number: JP-TEVA-638577ISR

PATIENT
  Age: 85 Year
  Sex: Female
  Weight: 49 kg

DRUGS (2)
  1. RISPERIDONE. [Suspect]
     Active Substance: RISPERIDONE
     Indication: INSOMNIA
     Dosage: 1 MILLIGRAM DAILY; 0.5 MG ADMINISTERED TWICE (TOTAL 1.0 MG) AT 1-H INTERVALS
     Route: 048
  2. MIRTAZAPINE. [Concomitant]
     Active Substance: MIRTAZAPINE
     Indication: INSOMNIA
     Dosage: 15 MILLIGRAM DAILY; 7.5 MG TWICE (TOTAL 15 MG)

REACTIONS (7)
  - Blood pressure decreased [Recovered/Resolved]
  - Off label use [Unknown]
  - Hypotension [Recovered/Resolved]
  - Altered state of consciousness [Recovered/Resolved]
  - Disorientation [Recovered/Resolved]
  - Pulse abnormal [Recovered/Resolved]
  - Somnolence [Recovered/Resolved]
